FAERS Safety Report 7349299-2 (Version None)
Quarter: 2011Q1

REPORT INFORMATION
  Report Type: 
  Country: None (occurrence: None)
  Receive Date: 20110314
  Receipt Date: 20110214
  Transmission Date: 20110831
  Serious: No
  Sender: FDA-Public Use
  Company Number: US-B.I. PHARMACEUTICALS,INC./RIDGEFIELD-2010-BP-14628BP

PATIENT
  Sex: Female

DRUGS (10)
  1. PRAVASTATIN [Concomitant]
     Dosage: 1 1/2 TAB DAILY
     Route: 048
  2. METOPROLOL TARTRATE [Concomitant]
     Dosage: 1 1/2 TAB DAILY
     Route: 048
  3. PRANDIN [Concomitant]
     Indication: DIABETES MELLITUS
     Dosage: 1/2 TAB WITH EACH MEAL
     Route: 048
  4. ESTER C [Concomitant]
     Route: 048
  5. CALCIUM WITH D [Concomitant]
     Route: 048
  6. ADVAIR DISKUS 100/50 [Concomitant]
     Dosage: 250/50
     Route: 048
  7. FISH OIL [Concomitant]
     Route: 048
  8. CENTRUM SILVER [Concomitant]
     Route: 048
  9. PRADAXA [Suspect]
     Indication: ATRIAL FIBRILLATION
     Dosage: 300 MG
     Route: 048
     Dates: start: 20101210
  10. AMOXICILLIN [Concomitant]
     Route: 048

REACTIONS (2)
  - HEADACHE [None]
  - CONTUSION [None]
